FAERS Safety Report 4842045-3 (Version None)
Quarter: 2005Q4

REPORT INFORMATION
  Report Type: 
  Country: None (occurrence: None)
  Receive Date: 20051130
  Receipt Date: 20051116
  Transmission Date: 20060501
  Serious: Yes (Disabling)
  Sender: FDA-Public Use
  Company Number: GB-JNJFOC-20051104270

PATIENT
  Age: 96 Year
  Sex: Female

DRUGS (9)
  1. TRAMADOL HCL [Suspect]
     Indication: BACK PAIN
     Route: 048
  2. CITALOPRAM [Interacting]
     Indication: DEPRESSION
     Route: 048
  3. ASPIRIN [Concomitant]
     Indication: ANGINA PECTORIS
     Route: 048
  4. ASPIRIN [Concomitant]
     Indication: MOBILITY DECREASED
     Route: 048
  5. ASPIRIN [Concomitant]
     Indication: THROMBOSIS PROPHYLAXIS
     Route: 048
  6. FRUSEMIDE [Concomitant]
     Route: 048
  7. PROPRANOLOL [Concomitant]
     Route: 048
  8. OMEPRAZOLE [Concomitant]
     Route: 048
  9. ACETAMINOPHEN [Concomitant]
     Dosage: 1-2 QDS PRN
     Route: 048

REACTIONS (6)
  - DISORIENTATION [None]
  - DRUG INTERACTION [None]
  - FEAR [None]
  - FEELING ABNORMAL [None]
  - HALLUCINATION [None]
  - IMMOBILE [None]
